FAERS Safety Report 7588327-6 (Version None)
Quarter: 2011Q3

REPORT INFORMATION
  Report Type: 
  Country: None (occurrence: None)
  Receive Date: 20110705
  Receipt Date: 20110621
  Transmission Date: 20111222
  Serious: Yes (Hospitalization, Other)
  Sender: FDA-Public Use
  Company Number: US-BAYER-200931540NA

PATIENT
  Age: 74 Year
  Sex: Female
  Weight: 77.9 kg

DRUGS (22)
  1. LIDOCAINE [Concomitant]
     Dosage: 10 MG, UNK
     Route: 042
     Dates: start: 20061010, end: 20061010
  2. MANNITOL [Concomitant]
     Dosage: 57.5 GMS, UNK
     Route: 042
     Dates: start: 20061010, end: 20061010
  3. PROPOFOL [Concomitant]
     Dosage: 200 MG, UNK
     Route: 042
     Dates: start: 20061010, end: 20061010
  4. CEFAZOLIN [Concomitant]
     Dosage: 3 GMS, UNK
     Route: 042
     Dates: start: 20061010, end: 20061010
  5. PANCURONIUM [Concomitant]
     Dosage: 10 MG, UNK
     Route: 042
     Dates: start: 20061010, end: 20061010
  6. TRASYLOL [Suspect]
     Indication: AORTIC VALVE REPAIR
     Dosage: 400 ML/HR
     Route: 042
     Dates: start: 20061010, end: 20061010
  7. TRASYLOL [Suspect]
     Indication: AORTIC ANEURYSM REPAIR
     Dosage: 200 ML, UNK
     Route: 042
     Dates: start: 20061010, end: 20061010
  8. PROTAMINE SULFATE [Concomitant]
     Dosage: 500 MG, UNK
     Route: 042
     Dates: start: 20061010, end: 20061010
  9. ALBUMIN (HUMAN) [Concomitant]
     Dosage: 500 ML, UNK
     Dates: start: 20061010, end: 20061010
  10. BLOOD AND RELATED PRODUCTS [Concomitant]
     Dosage: 800 ML
     Dates: start: 20061010
  11. MAGNESIUM SULFATE [Concomitant]
     Dosage: UNK
     Route: 042
     Dates: start: 20061010, end: 20061010
  12. HEPARIN [Concomitant]
     Dosage: 22, 000 UNITS, UNK
     Route: 042
     Dates: start: 20061010, end: 20061010
  13. HYDROCORTISONE [Concomitant]
     Dosage: 1000 MG, UNK
     Route: 042
     Dates: start: 20061010, end: 20061010
  14. LOVASTATIN [Concomitant]
     Dosage: 20 MG, BID
     Route: 048
  15. MIDAZOLAM HCL [Concomitant]
     Dosage: 12 MG, UNK
     Route: 042
     Dates: start: 20061010, end: 20061010
  16. DEXTROSE [Concomitant]
     Dosage: 12.5 GM, UNK
     Route: 042
     Dates: start: 20061010, end: 20061010
  17. SODIUM BICARBONATE [Concomitant]
     Dosage: 40 MILLE-EQUIVALENTS, UNK
     Route: 042
     Dates: start: 20061010, end: 20061010
  18. FOSAMAX [Concomitant]
     Dosage: 70 MG, QD
  19. CALCIUM CARBONATE [Concomitant]
  20. METOPROLOL TARTRATE [Concomitant]
     Dosage: 25 MG, BID
     Route: 048
  21. FENTANYL [Concomitant]
     Dosage: 1000 MCG, UNK
     Route: 042
     Dates: start: 20061010, end: 20061010
  22. FRESH FROZEN PLASMA [Concomitant]
     Dosage: 550 ML
     Dates: start: 20061010

REACTIONS (13)
  - RENAL INJURY [None]
  - RENAL FAILURE [None]
  - FEAR [None]
  - INJURY [None]
  - NERVOUSNESS [None]
  - PAIN [None]
  - EMOTIONAL DISTRESS [None]
  - FEAR OF DEATH [None]
  - MULTI-ORGAN FAILURE [None]
  - ANHEDONIA [None]
  - ANXIETY [None]
  - DEPRESSION [None]
  - UNEVALUABLE EVENT [None]
